FAERS Safety Report 9571858 (Version 2)
Quarter: 2014Q1

REPORT INFORMATION
  Report Type: Report from Study
  Country: FR (occurrence: FR)
  Receive Date: 20131001
  Receipt Date: 20140102
  Transmission Date: 20141002
  Serious: Yes (Life-Threatening)
  Sender: FDA-Public Use
  Company Number: FR-SA-2013SA094264

PATIENT
  Age: 77 Year
  Sex: Male

DRUGS (3)
  1. CAMPATH [Suspect]
     Indication: CHRONIC LYMPHOCYTIC LEUKAEMIA
     Route: 058
     Dates: start: 20130807, end: 20130919
  2. BACTRIM [Concomitant]
     Indication: PROPHYLAXIS
  3. ZELITREX [Concomitant]
     Indication: PROPHYLAXIS

REACTIONS (1)
  - Drug ineffective [Unknown]
